FAERS Safety Report 16026638 (Version 1)
Quarter: 2019Q1

REPORT INFORMATION
  Report Type: Spontaneous
  Country: FR (occurrence: FR)
  Receive Date: 20190302
  Receipt Date: 20190302
  Transmission Date: 20190418
  Serious: Yes (Hospitalization)
  Sender: FDA-Public Use
  Company Number: FR-ALLERGAN-1908042US

PATIENT
  Sex: Female
  Weight: 47 kg

DRUGS (2)
  1. IMETH [Suspect]
     Active Substance: METHOTREXATE SODIUM
     Indication: SYSTEMIC SCLERODERMA
     Dosage: 10 G, TOTAL
     Route: 048
     Dates: start: 20180601, end: 20190127
  2. FOSFOMYCIN TROMETHAMINE - BP [Suspect]
     Active Substance: FOSFOMYCIN TROMETHAMINE
     Indication: URINARY TRACT INFECTION
     Dosage: 3 G, SINGLE
     Route: 048
     Dates: start: 20190113, end: 20190113

REACTIONS (1)
  - Agranulocytosis [Recovered/Resolved]

NARRATIVE: CASE EVENT DATE: 20190123
